FAERS Safety Report 5691670-9 (Version None)
Quarter: 2008Q2

REPORT INFORMATION
  Report Type: 
  Country: None (occurrence: None)
  Receive Date: 20080402
  Receipt Date: 20080321
  Transmission Date: 20081010
  Serious: Yes (Hospitalization)
  Sender: FDA-Public Use
  Company Number: CZ-AMGEN-UK262497

PATIENT
  Sex: Male

DRUGS (15)
  1. PANITUMUMAB [Suspect]
     Indication: SQUAMOUS CELL CARCINOMA
     Route: 042
     Dates: start: 20071203, end: 20071203
  2. PANITUMUMAB [Suspect]
     Route: 042
     Dates: start: 20071227, end: 20071227
  3. RADIATION THERAPY [Suspect]
  4. DEGAN [Concomitant]
     Dates: start: 20071204
  5. NEURONTIN [Concomitant]
     Dates: start: 20071217
  6. TORECAN [Concomitant]
     Dates: start: 20071214
  7. CALCIUM PANTOTHENATE [Concomitant]
     Dates: start: 20071214
  8. TIAPRIDAL [Concomitant]
     Dates: start: 20071217
  9. MORPHINE [Concomitant]
     Dates: start: 20071217
  10. CLOTRIMAZOLE [Concomitant]
     Dates: start: 20071219
  11. DURAGESIC-100 [Concomitant]
     Dates: start: 20071205
  12. ACETAMINOPHEN [Concomitant]
     Dates: start: 20080103
  13. CHLORHEXIDINE GLUCONATE [Concomitant]
     Dates: start: 20071115
  14. DICLOFENAC SODIUM [Concomitant]
     Dates: start: 20071120
  15. TRAMADOL HCL [Concomitant]

REACTIONS (2)
  - SKIN TOXICITY [None]
  - VASCULITIS [None]
